FAERS Safety Report 9616604 (Version 1)
Quarter: 2013Q4

REPORT INFORMATION
  Report Type: Spontaneous
  Country: US (occurrence: None)
  Receive Date: 20131010
  Receipt Date: 20131010
  Transmission Date: 20140711
  Serious: Yes (Hospitalization)
  Sender: FDA-Public Use
  Company Number: None

PATIENT
  Age: 58 Year
  Sex: Male

DRUGS (1)
  1. ACTHAR [Suspect]
     Indication: NEPHROTIC SYNDROME
     Route: 058
     Dates: start: 20130808, end: 20130808

REACTIONS (2)
  - Ulcer haemorrhage [None]
  - Helicobacter infection [None]
